FAERS Safety Report 19667281 (Version 1)
Quarter: 2021Q3

REPORT INFORMATION
  Report Type: Spontaneous
  Country: NO (occurrence: NO)
  Receive Date: 20210806
  Receipt Date: 20210806
  Transmission Date: 20211014
  Serious: Yes (Death, Hospitalization, Disabling)
  Sender: FDA-Public Use
  Company Number: NO-MYLANLABS-2021M1048808

PATIENT
  Sex: Male

DRUGS (2)
  1. BUPRENORPHINE. [Suspect]
     Active Substance: BUPRENORPHINE
     Indication: PRODUCT USED FOR UNKNOWN INDICATION
     Dosage: TABLETS HAVE BEEN INJECTED
     Route: 065
  2. METHADONE [Suspect]
     Active Substance: METHADONE HYDROCHLORIDE
     Indication: PRODUCT USED FOR UNKNOWN INDICATION
     Dosage: SYRUP HAS BEEN INJECTED
     Route: 065

REACTIONS (15)
  - Multiple organ dysfunction syndrome [Fatal]
  - General physical health deterioration [Unknown]
  - Malabsorption [Unknown]
  - Weight decreased [Unknown]
  - Intentional product use issue [Unknown]
  - Drug abuse [Fatal]
  - Cachexia [Fatal]
  - Pancreatic failure [Unknown]
  - Staphylococcal infection [Unknown]
  - Osteomyelitis chronic [Unknown]
  - Type 1 diabetes mellitus [Unknown]
  - Renal failure [Unknown]
  - Reaction to excipient [Fatal]
  - Femoral neck fracture [Unknown]
  - Resorption bone increased [Unknown]
